FAERS Safety Report 7828966-8 (Version None)
Quarter: 2011Q4

REPORT INFORMATION
  Report Type: 
  Country: None (occurrence: None)
  Receive Date: 20111020
  Receipt Date: 20080515
  Transmission Date: 20120403
  Serious: Yes (Other)
  Sender: FDA-Public Use
  Company Number: US-BAYER-200823292NA

PATIENT
  Sex: Male
  Weight: 90.7 kg

DRUGS (38)
  1. MAGNEVIST [Suspect]
     Indication: NUCLEAR MAGNETIC RESONANCE IMAGING
     Dates: start: 20060401, end: 20060401
  2. GADOLINIUM IN UNSPECIFIED DRUG [Suspect]
     Dosage: UNK, ONCE
     Dates: start: 20060529, end: 20060529
  3. PLAVIX [Concomitant]
  4. ACETYLSALICYLIC ACID SRT [Concomitant]
  5. MINOXIDIL [Concomitant]
  6. MAGNEVIST [Suspect]
     Dosage: UNK, ONCE
     Dates: start: 20060819, end: 20060819
  7. GADOLINIUM IN UNSPECIFIED DRUG [Suspect]
  8. PREDNISONE [Concomitant]
  9. PROBENECID [Concomitant]
  10. EPOETIN NOS [Concomitant]
  11. IBUPROFEN [Concomitant]
  12. METOPROLOL TARTRATE [Concomitant]
  13. NORCO [Concomitant]
  14. TRICOR [Concomitant]
  15. NOVOLOG [Concomitant]
  16. ACETAMINOPHEN [Concomitant]
  17. LACTULOSE [Concomitant]
  18. ZOCOR [Concomitant]
  19. TORSEMIDE [Concomitant]
  20. PHOSLO [Concomitant]
  21. CALCITRIOL [Concomitant]
  22. ENALAPRIL MALEATE [Concomitant]
  23. HEPARIN [Concomitant]
  24. PHOSPHATES [Concomitant]
  25. FERROUS SULFATE TAB [Concomitant]
  26. MAGNEVIST [Suspect]
  27. GLIPIZIDE [Concomitant]
  28. WARFARIN SODIUM [Concomitant]
  29. CALCIUM ACETATE [Concomitant]
  30. GADOLINIUM IN UNSPECIFIED DRUG [Suspect]
     Indication: NUCLEAR MAGNETIC RESONANCE IMAGING
     Dosage: UNK UNK, ONCE
     Dates: start: 20030611, end: 20030611
  31. HYDRALAZINE HCL [Concomitant]
  32. NORVASC [Concomitant]
  33. COREG [Concomitant]
  34. ARANESP [Concomitant]
  35. PANTOPRAZOLE [Concomitant]
  36. MAGNEVIST [Suspect]
     Dosage: UNK, ONCE
     Dates: start: 20060824, end: 20060824
  37. GADOLINIUM IN UNSPECIFIED DRUG [Suspect]
     Indication: ANGIOGRAM
     Dosage: UNK, ONCE
     Dates: start: 20060410, end: 20060410
  38. LASIX [Concomitant]

REACTIONS (12)
  - EMOTIONAL DISTRESS [None]
  - GENERAL PHYSICAL HEALTH DETERIORATION [None]
  - SCAR [None]
  - SKIN INDURATION [None]
  - NEPHROGENIC SYSTEMIC FIBROSIS [None]
  - FIBROSIS [None]
  - JOINT CONTRACTURE [None]
  - INJURY [None]
  - SKIN FIBROSIS [None]
  - PAIN [None]
  - MYOSCLEROSIS [None]
  - ABASIA [None]
